FAERS Safety Report 6264621-6 (Version None)
Quarter: 2009Q3

REPORT INFORMATION
  Report Type: 
  Country: None (occurrence: None)
  Receive Date: 20090710
  Receipt Date: 20090706
  Transmission Date: 20100115
  Serious: Yes (Hospitalization)
  Sender: FDA-Public Use
  Company Number: DE-ABBOTT-09P-062-0583524-00

PATIENT
  Sex: Female

DRUGS (4)
  1. HUMIRA [Suspect]
     Indication: RHEUMATOID ARTHRITIS
     Route: 058
     Dates: start: 20071022
  2. HUMIRA [Suspect]
     Indication: CROHN'S DISEASE
  3. MTX [Concomitant]
     Indication: RHEUMATOID ARTHRITIS
  4. MTX [Concomitant]
     Indication: CROHN'S DISEASE

REACTIONS (2)
  - GASTROINTESTINAL STENOSIS [None]
  - URETHRAL DISORDER [None]
